FAERS Safety Report 19315593 (Version 2)
Quarter: 2021Q2

REPORT INFORMATION
  Report Type: Spontaneous
  Country: JP (occurrence: JP)
  Receive Date: 20210527
  Receipt Date: 20210609
  Transmission Date: 20210717
  Serious: Yes (Other)
  Sender: FDA-Public Use
  Company Number: JP-TEVA-2021-JP-1917179

PATIENT
  Age: 7 Decade
  Sex: Female

DRUGS (5)
  1. AZILECT [Suspect]
     Active Substance: RASAGILINE MESYLATE
     Indication: PARKINSON^S DISEASE
     Dosage: 1 MILLIGRAM DAILY;
     Route: 048
     Dates: end: 20210513
  2. MENESIT [Concomitant]
     Active Substance: CARBIDOPA\LEVODOPA
  3. TRERIEF [Concomitant]
     Active Substance: ZONISAMIDE
  4. NOURIAST [Concomitant]
     Active Substance: ISTRADEFYLLINE
  5. ENTACAPONE. [Concomitant]
     Active Substance: ENTACAPONE

REACTIONS (2)
  - Aggression [Not Recovered/Not Resolved]
  - Hallucination [Not Recovered/Not Resolved]

NARRATIVE: CASE EVENT DATE: 20210518
